FAERS Safety Report 8202513-3 (Version None)
Quarter: 2012Q1

REPORT INFORMATION
  Report Type: 
  Country: None (occurrence: None)
  Receive Date: 20120312
  Receipt Date: 20120308
  Transmission Date: 20120608
  Serious: No
  Sender: FDA-Public Use
  Company Number: US-BAYER-2012-023708

PATIENT
  Age: 53 Year
  Sex: Female

DRUGS (1)
  1. BETASERON [Suspect]
     Indication: MULTIPLE SCLEROSIS
     Dosage: 0.3 MG, UNK
     Route: 058
     Dates: start: 20100201

REACTIONS (3)
  - MUSCLE SPASTICITY [None]
  - ANXIETY [None]
  - SOMNOLENCE [None]
